FAERS Safety Report 16120057 (Version 1)
Quarter: 2019Q1

REPORT INFORMATION
  Report Type: Spontaneous
  Country: US (occurrence: US)
  Receive Date: 20190326
  Receipt Date: 20190326
  Transmission Date: 20190418
  Serious: No
  Sender: FDA-Public Use
  Company Number: US-IBSA PHARMA-TIR-2018-1079

PATIENT
  Age: 61 Year
  Sex: Female
  Weight: 59.02 kg

DRUGS (3)
  1. TIROSINT [Suspect]
     Active Substance: LEVOTHYROXINE SODIUM
     Dosage: 88MCG DAILY
     Route: 048
     Dates: start: 2018
  2. TIROSINT [Suspect]
     Active Substance: LEVOTHYROXINE SODIUM
     Indication: HYPOTHYROIDISM
     Dosage: 88MCG DAILY
     Route: 048
  3. TIROSINT [Suspect]
     Active Substance: LEVOTHYROXINE SODIUM
     Dosage: 88MCG DAILY
     Route: 048

REACTIONS (10)
  - Throat irritation [None]
  - Pain in extremity [None]
  - Product quality issue [Unknown]
  - Inappropriate schedule of product administration [None]
  - Product measured potency issue [Unknown]
  - Chest pain [None]
  - Anxiety [None]
  - Palpitations [None]
  - Blood thyroid stimulating hormone decreased [Unknown]
  - Dizziness [None]

NARRATIVE: CASE EVENT DATE: 201809
